FAERS Safety Report 5738877-X (Version None)
Quarter: 2008Q2

REPORT INFORMATION
  Report Type: 
  Country: None (occurrence: None)
  Receive Date: 20080515
  Receipt Date: 20080514
  Transmission Date: 20081010
  Serious: Yes (Other)
  Sender: FDA-Public Use
  Company Number: FR-RB-000417-08

PATIENT
  Age: 32 Year
  Sex: Male

DRUGS (5)
  1. SUBUTEX [Suspect]
     Indication: DRUG USE FOR UNKNOWN INDICATION
     Route: 045
     Dates: start: 19980101, end: 20000101
  2. SUBUTEX [Suspect]
     Route: 065
  3. SUBUTEX [Suspect]
     Route: 045
     Dates: start: 19980101, end: 20000101
  4. SUBUTEX [Suspect]
     Dosage: ROUTE AND FORM UNKNOWN
     Route: 065
  5. SUBUTEX [Suspect]
     Dosage: FORM AND ROUTE UNKNOWN
     Route: 065

REACTIONS (11)
  - AGITATION [None]
  - ANXIETY [None]
  - DELUSIONAL DISORDER, PERSECUTORY TYPE [None]
  - DRUG WITHDRAWAL SYNDROME [None]
  - FATIGUE [None]
  - HALLUCINATION, AUDITORY [None]
  - HALLUCINATION, VISUAL [None]
  - MYALGIA [None]
  - PSYCHOTIC DISORDER [None]
  - SLEEP DISORDER [None]
  - SUBSTANCE ABUSE [None]
